FAERS Safety Report 5079382-6 (Version None)
Quarter: 2006Q3

REPORT INFORMATION
  Report Type: 
  Country: None (occurrence: None)
  Receive Date: 20060809
  Receipt Date: 20060724
  Transmission Date: 20061208
  Serious: Yes (Other)
  Sender: FDA-Public Use
  Company Number: 2006001500

PATIENT
  Sex: Male

DRUGS (1)
  1. ERLOTINIB HCL (TABLET) (ERLOTINIB HCL) [Suspect]
     Indication: GLIOBLASTOMA
     Dosage: 175 MG (QD), ORAL
     Route: 048
     Dates: start: 20060326

REACTIONS (1)
  - HYPOPHOSPHATAEMIA [None]
